FAERS Safety Report 10599647 (Version 1)
Quarter: 2014Q4

REPORT INFORMATION
  Report Type: Report from Study
  Country: AU (occurrence: AU)
  Receive Date: 20141121
  Receipt Date: 20141121
  Transmission Date: 20150529
  Serious: Yes (Other)
  Sender: FDA-Public Use
  Company Number: PHHY2014AU152864

PATIENT
  Age: 48 Year
  Sex: Male

DRUGS (4)
  1. BASILIXIMAB [Suspect]
     Active Substance: BASILIXIMAB
     Indication: RENAL TRANSPLANT
     Route: 065
  2. TACROLIMUS. [Suspect]
     Active Substance: TACROLIMUS
     Indication: RENAL TRANSPLANT
     Route: 065
  3. MYCOPHENOLATE MOFETIL. [Suspect]
     Active Substance: MYCOPHENOLATE MOFETIL
     Indication: RENAL TRANSPLANT
     Route: 065
  4. PREDNISOLONE. [Suspect]
     Active Substance: PREDNISOLONE
     Indication: RENAL TRANSPLANT
     Route: 065

REACTIONS (9)
  - Urine output decreased [Unknown]
  - Oedematous kidney [Unknown]
  - Hypoperfusion [Unknown]
  - Malaise [Unknown]
  - Renal artery occlusion [Unknown]
  - Renal tubular necrosis [Unknown]
  - Blood pressure systolic decreased [Recovered/Resolved]
  - Renal infarct [Unknown]
  - Antibody test positive [Unknown]
